FAERS Safety Report 5316264-6 (Version None)
Quarter: 2007Q2

REPORT INFORMATION
  Report Type: 
  Country: None (occurrence: None)
  Receive Date: 20070430
  Receipt Date: 20070418
  Transmission Date: 20071010
  Serious: Yes (Hospitalization)
  Sender: FDA-Public Use
  Company Number: 2007BI008397

PATIENT
  Age: 57 Year
  Sex: Female
  Weight: 88.4514 kg

DRUGS (1)
  1. AVONEX [Suspect]
     Indication: MULTIPLE SCLEROSIS
     Dosage: 30 UG; QW; IM
     Route: 030
     Dates: start: 20070406, end: 20070406

REACTIONS (7)
  - ABASIA [None]
  - CHILLS [None]
  - FALL [None]
  - FEELING COLD [None]
  - PYREXIA [None]
  - SYNCOPE [None]
  - UNEVALUABLE EVENT [None]
